FAERS Safety Report 22154017 (Version 2)
Quarter: 2023Q2

REPORT INFORMATION
  Report Type: Spontaneous
  Country: US (occurrence: US)
  Receive Date: 20230330
  Receipt Date: 20230412
  Transmission Date: 20230721
  Serious: Yes (Hospitalization, Other)
  Sender: FDA-Public Use
  Company Number: US-TEVA-2023-US-2870002

PATIENT
  Age: 76 Year
  Sex: Male

DRUGS (8)
  1. PROPRANOLOL [Suspect]
     Active Substance: PROPRANOLOL HYDROCHLORIDE
     Indication: Akathisia
     Dosage: 10 MG
     Route: 048
  2. OPICAPONE [Suspect]
     Active Substance: OPICAPONE
     Indication: Parkinson^s disease
     Dosage: 50 MILLIGRAM DAILY; ONCE A DAY
     Route: 065
  3. LORAZEPAM [Suspect]
     Active Substance: LORAZEPAM
     Indication: Akathisia
     Dosage: INITIAL DOSAGE NOT STATED
     Route: 065
  4. LORAZEPAM [Suspect]
     Active Substance: LORAZEPAM
     Dosage: 0.5 MG
     Route: 042
  5. CARBIDOPA\LEVODOPA [Concomitant]
     Active Substance: CARBIDOPA\LEVODOPA
     Indication: Parkinson^s disease
     Dosage: 7 DOSAGE FORMS DAILY; ONCE A DAY  , EXTENDED RELEASE , LEVODOPA: 195 MG; CARBIDOPA: 48.75 MG
     Route: 065
  6. ROPINIROLE [Concomitant]
     Active Substance: ROPINIROLE
     Indication: Parkinson^s disease
     Dosage: 2 MILLIGRAM DAILY; EXTENDED RELEASE , ONCE A DAY
     Route: 065
  7. RASAGILINE [Concomitant]
     Active Substance: RASAGILINE
     Indication: Parkinson^s disease
     Dosage: .5 MILLIGRAM DAILY; ONCE A DAY
     Route: 065
  8. TRIHEXYPHENIDYL [Concomitant]
     Active Substance: TRIHEXYPHENIDYL
     Indication: Akathisia
     Dosage: 3 MILLIGRAM DAILY; 1 MG EVERY 8 HOURS
     Route: 048

REACTIONS (3)
  - Akathisia [Recovered/Resolved]
  - Bradycardia [Unknown]
  - Delirium [Unknown]
